FAERS Safety Report 6314442-0 (Version None)
Quarter: 2009Q3

REPORT INFORMATION
  Report Type: 
  Country: None (occurrence: None)
  Receive Date: 20090819
  Receipt Date: 20090812
  Transmission Date: 20100115
  Serious: Yes (Hospitalization)
  Sender: FDA-Public Use
  Company Number: US-CELGENEUS-163-21880-09051566

PATIENT
  Sex: Female
  Weight: 65.9 kg

DRUGS (4)
  1. REVLIMID [Suspect]
     Route: 048
     Dates: start: 20090325, end: 20090504
  2. MELPHALAN HYDROCHLORIDE [Suspect]
     Route: 048
     Dates: start: 20090325, end: 20090428
  3. PREDNISONE TAB [Suspect]
     Route: 048
     Dates: start: 20090325, end: 20090428
  4. ASPIRIN [Concomitant]
     Indication: DRUG USE FOR UNKNOWN INDICATION
     Route: 048
     Dates: start: 20090325

REACTIONS (1)
  - LARYNGEAL OEDEMA [None]
